FAERS Safety Report 16795947 (Version 2)
Quarter: 2020Q3

REPORT INFORMATION
  Report Type: Spontaneous
  Country: US (occurrence: US)
  Receive Date: 20190911
  Receipt Date: 20200914
  Transmission Date: 20201102
  Serious: No
  Sender: FDA-Public Use
  Company Number: US-UNIQUE PHARMACEUTICAL LABORATORIES-2019RIS00246

PATIENT
  Age: 39 Year
  Sex: Female
  Weight: 52.15 kg

DRUGS (6)
  1. CETIRIZINE HYDROCHLORIDE. [Suspect]
     Active Substance: CETIRIZINE HYDROCHLORIDE
     Indication: SINUSITIS
     Dosage: 10 MG, 1X/DAY
     Route: 048
     Dates: start: 201706
  2. VITAMINS (UNSPECIFIED) [Suspect]
     Active Substance: VITAMINS
  3. TOPIRAMATE. [Concomitant]
     Active Substance: TOPIRAMATE
  4. LEVOTHYROXIN [Concomitant]
     Active Substance: LEVOTHYROXINE
  5. IRON [Concomitant]
     Active Substance: IRON
  6. OTHER OTC MEDICATION [Suspect]
     Active Substance: UNSPECIFIED INGREDIENT

REACTIONS (2)
  - Off label use [Not Recovered/Not Resolved]
  - Coeliac disease [Not Recovered/Not Resolved]

NARRATIVE: CASE EVENT DATE: 201706
